FAERS Safety Report 8122047-4 (Version None)
Quarter: 2012Q1

REPORT INFORMATION
  Report Type: 
  Country: None (occurrence: None)
  Receive Date: 20120208
  Receipt Date: 20120127
  Transmission Date: 20120608
  Serious: Yes (Hospitalization)
  Sender: FDA-Public Use
  Company Number: US-BAYER-2011-042259

PATIENT
  Age: 49 Year
  Sex: Female
  Weight: 65.76 kg

DRUGS (11)
  1. TOPROL-XL [Concomitant]
     Dosage: UNK
     Dates: start: 20090101
  2. IBUPROFEN [Concomitant]
     Dosage: UNK
     Dates: start: 20060101
  3. YASMIN [Suspect]
     Indication: DYSFUNCTIONAL UTERINE BLEEDING
  4. ZOLOFT [Concomitant]
     Dosage: UNK
     Dates: start: 19990101, end: 20090101
  5. IMITREX [Concomitant]
     Dosage: UNK
     Dates: start: 19990101
  6. SERTRALINE HYDROCHLORIDE [Concomitant]
     Dosage: UNK
     Dates: start: 20080101
  7. ASPIRIN [Concomitant]
  8. NORVASC [Concomitant]
     Dosage: UNK
     Dates: start: 20000101, end: 20090101
  9. IMIPRAMINE [Concomitant]
  10. YASMIN [Suspect]
     Indication: PREMENSTRUAL SYNDROME
     Dosage: UNK
     Dates: start: 20031203, end: 20031220
  11. THYROID MEDICATION [Concomitant]
     Dosage: UNK
     Dates: start: 20080101, end: 20090101

REACTIONS (7)
  - EMOTIONAL DISTRESS [None]
  - PAIN IN EXTREMITY [None]
  - OEDEMA PERIPHERAL [None]
  - PAIN [None]
  - ANXIETY [None]
  - DEEP VEIN THROMBOSIS [None]
  - INJURY [None]
